FAERS Safety Report 8124820-5 (Version None)
Quarter: 2012Q1

REPORT INFORMATION
  Report Type: 
  Country: None (occurrence: None)
  Receive Date: 20120209
  Receipt Date: 20120209
  Transmission Date: 20120608
  Serious: No
  Sender: FDA-Public Use
  Company Number: US-JNJFOC-20111202218

PATIENT
  Sex: Male
  Weight: 93.44 kg

DRUGS (15)
  1. DURAGESIC-100 [Suspect]
     Route: 062
     Dates: start: 20111201
  2. DURAGESIC-100 [Suspect]
     Route: 062
  3. DURAGESIC-100 [Suspect]
     Route: 062
     Dates: start: 20111201, end: 20111201
  4. DURAGESIC-100 [Suspect]
     Route: 062
     Dates: start: 20111201, end: 20111201
  5. DURAGESIC-100 [Suspect]
     Route: 062
     Dates: start: 20111101, end: 20111201
  6. DURAGESIC-100 [Suspect]
     Route: 062
     Dates: start: 20111201, end: 20111201
  7. DURAGESIC-100 [Suspect]
     Route: 062
     Dates: start: 20111201, end: 20111201
  8. DURAGESIC-100 [Suspect]
     Indication: PAIN
     Route: 062
     Dates: start: 20111202
  9. DURAGESIC-100 [Suspect]
     Route: 062
  10. DURAGESIC-100 [Suspect]
     Route: 062
     Dates: start: 20111201, end: 20111201
  11. DURAGESIC-100 [Suspect]
     Indication: BACK PAIN
     Route: 062
     Dates: start: 20111202
  12. DURAGESIC-100 [Suspect]
     Route: 062
  13. DURAGESIC-100 [Suspect]
     Route: 062
  14. DURAGESIC-100 [Suspect]
     Indication: OSTEOPOROSIS
     Route: 062
     Dates: start: 20111202
  15. DURAGESIC-100 [Suspect]
     Indication: INTERVERTEBRAL DISC PROTRUSION
     Route: 062
     Dates: start: 20111202

REACTIONS (7)
  - THERAPEUTIC RESPONSE DECREASED [None]
  - APPLICATION SITE DERMATITIS [None]
  - PRODUCT QUALITY ISSUE [None]
  - WRONG TECHNIQUE IN DRUG USAGE PROCESS [None]
  - BREAKTHROUGH PAIN [None]
  - DRUG INEFFECTIVE [None]
  - APPLICATION SITE RASH [None]
